FAERS Safety Report 6116870-5 (Version None)
Quarter: 2009Q1

REPORT INFORMATION
  Report Type: 
  Country: None (occurrence: None)
  Receive Date: 20090314
  Receipt Date: 20081230
  Transmission Date: 20090719
  Serious: No
  Sender: FDA-Public Use
  Company Number: US-ABBOTT-08P-163-0495274-00

PATIENT
  Sex: Male
  Weight: 99.88 kg

DRUGS (9)
  1. HUMIRA [Suspect]
     Indication: RHEUMATOID ARTHRITIS
     Route: 058
     Dates: start: 20050101, end: 20081222
  2. HUMIRA [Suspect]
     Route: 058
     Dates: start: 20081223
  3. PREDNISONE [Concomitant]
     Indication: DRUG USE FOR UNKNOWN INDICATION
  4. METHOTREXATE [Concomitant]
     Indication: DRUG USE FOR UNKNOWN INDICATION
  5. TOPROL-XL [Concomitant]
     Indication: DRUG USE FOR UNKNOWN INDICATION
  6. ALTACE [Concomitant]
     Indication: DRUG USE FOR UNKNOWN INDICATION
  7. FOLIC ACID [Concomitant]
     Indication: DRUG USE FOR UNKNOWN INDICATION
  8. VITAMIN D [Concomitant]
     Indication: DRUG USE FOR UNKNOWN INDICATION
  9. UNNAMED FLUID PILL [Concomitant]
     Indication: DRUG USE FOR UNKNOWN INDICATION

REACTIONS (1)
  - RHEUMATOID ARTHRITIS [None]
